FAERS Safety Report 4797052-6 (Version None)
Quarter: 2005Q3

REPORT INFORMATION
  Report Type: 
  Country: None (occurrence: None)
  Receive Date: 20050916
  Receipt Date: 20050207
  Transmission Date: 20060218
  Serious: Yes (Other)
  Sender: FDA-Public Use
  Company Number: US-JNJFOC-20050202609

PATIENT
  Sex: Female

DRUGS (4)
  1. TOPAMAX [Suspect]
     Indication: MIGRAINE PROPHYLAXIS
     Dosage: 150 MG, IN 1 DAY, ORAL; 75 MG, ORAL; IN 1 DAY, ORAL
     Route: 048
     Dates: start: 20040101
  2. TOPAMAX [Suspect]
     Indication: MIGRAINE PROPHYLAXIS
     Dosage: 150 MG, IN 1 DAY, ORAL; 75 MG, ORAL; IN 1 DAY, ORAL
     Route: 048
     Dates: start: 20040501
  3. YASMINE (DROSPIRENONE) [Concomitant]
  4. ESTRADIOL [Concomitant]

REACTIONS (1)
  - BLOOD BICARBONATE DECREASED [None]
